FAERS Safety Report 12331359 (Version 1)
Quarter: 2016Q2

REPORT INFORMATION
  Report Type: Spontaneous
  Country: US (occurrence: None)
  Receive Date: 20160503
  Receipt Date: 20160503
  Transmission Date: 20160815
  Serious: No
  Sender: FDA-Public Use
  Company Number: None

PATIENT
  Age: 61 Year
  Sex: Female
  Weight: 52.16 kg

DRUGS (5)
  1. CALCIUM [Concomitant]
     Active Substance: CALCIUM
  2. NORMAL SALINE NASAL SPRAY - ULTRA GENTLE TIP TARGET [Suspect]
     Active Substance: SODIUM CHLORIDE
     Indication: SINUS CONGESTION
     Dosage: IN THE MORNING  SPRAYED INTO NOSTRIL - 10 SEC EACH SIDE
     Route: 045
     Dates: start: 20160423, end: 20160502
  3. THYROXINE [Concomitant]
     Active Substance: LEVOTHYROXINE
  4. LIOTHYRONINE [Concomitant]
     Active Substance: LIOTHYRONINE
  5. ROPINEROLE [Concomitant]
     Active Substance: ROPINIROLE

REACTIONS (1)
  - Epistaxis [None]

NARRATIVE: CASE EVENT DATE: 20160502
